FAERS Safety Report 23083585 (Version 1)
Quarter: 2023Q4

REPORT INFORMATION
  Report Type: Spontaneous
  Country: US (occurrence: US)
  Receive Date: 20231019
  Receipt Date: 20231019
  Transmission Date: 20240109
  Serious: Yes (Death, Hospitalization)
  Sender: FDA-Public Use
  Company Number: US-MYLANLABS-2023M1109276

PATIENT
  Sex: Female
  Weight: 1.73 kg

DRUGS (14)
  1. BETAMETHASONE [Suspect]
     Active Substance: BETAMETHASONE
     Indication: Bradycardia foetal
     Dosage: UNK (RECEIVED SINGLE DOSE)
     Route: 064
  2. ISOPROTERENOL HYDROCHLORIDE [Suspect]
     Active Substance: ISOPROTERENOL HYDROCHLORIDE
     Indication: Sinus bradycardia
     Dosage: UNK (RECEIVED DRIP)
     Route: 065
  3. EPINEPHRINE [Suspect]
     Active Substance: EPINEPHRINE
     Indication: Cardiopulmonary failure
     Dosage: UNK
     Route: 065
  4. EPINEPHRINE [Suspect]
     Active Substance: EPINEPHRINE
     Indication: Resuscitation
  5. ATROPINE [Suspect]
     Active Substance: ATROPINE
     Indication: Cardiopulmonary failure
     Dosage: UNK
     Route: 065
  6. ATROPINE [Suspect]
     Active Substance: ATROPINE
     Indication: Resuscitation
  7. CALCIUM GLUCONATE [Suspect]
     Active Substance: CALCIUM GLUCONATE
     Indication: Cardiopulmonary failure
     Dosage: UNK
     Route: 065
  8. CALCIUM GLUCONATE [Suspect]
     Active Substance: CALCIUM GLUCONATE
     Indication: Resuscitation
  9. INSULIN NOS [Suspect]
     Active Substance: INSULIN NOS
     Indication: Cardiopulmonary failure
     Dosage: UNK
     Route: 065
  10. INSULIN NOS [Suspect]
     Active Substance: INSULIN NOS
     Indication: Resuscitation
  11. DEXTROSE [Suspect]
     Active Substance: DEXTROSE\DEXTROSE MONOHYDRATE
     Indication: Cardiopulmonary failure
     Dosage: UNK
     Route: 065
  12. DEXTROSE [Suspect]
     Active Substance: DEXTROSE\DEXTROSE MONOHYDRATE
     Indication: Resuscitation
  13. SODIUM BICARBONATE [Suspect]
     Active Substance: SODIUM BICARBONATE
     Indication: Cardiopulmonary failure
     Dosage: UNK
     Route: 065
  14. SODIUM BICARBONATE [Suspect]
     Active Substance: SODIUM BICARBONATE
     Indication: Resuscitation

REACTIONS (3)
  - Drug ineffective [Fatal]
  - Foetal exposure during pregnancy [Recovered/Resolved]
  - Off label use [Unknown]
